FAERS Safety Report 17156567 (Version 1)
Quarter: 2019Q4

REPORT INFORMATION
  Report Type: Spontaneous
  Country: GB (occurrence: GB)
  Receive Date: 20191216
  Receipt Date: 20191216
  Transmission Date: 20200122
  Serious: Yes (Hospitalization)
  Sender: FDA-Public Use
  Company Number: GB-TEVA-2019-GB-1151858

PATIENT
  Age: 17 Year
  Sex: Male
  Weight: 70 kg

DRUGS (2)
  1. ISOTRETINOIN. [Concomitant]
     Active Substance: ISOTRETINOIN
     Indication: ACNE
     Dosage: 60 MILLIGRAM
     Route: 048
     Dates: start: 20190619, end: 20190918
  2. TRIMETHOPRIM. [Suspect]
     Active Substance: TRIMETHOPRIM
     Indication: ACNE
     Dosage: 600 MILLIGRAM
     Route: 048
     Dates: start: 20190918, end: 20191030

REACTIONS (3)
  - Liver function test abnormal [Unknown]
  - Drug reaction with eosinophilia and systemic symptoms [Not Recovered/Not Resolved]
  - Rash morbilliform [Unknown]

NARRATIVE: CASE EVENT DATE: 20191029
